FAERS Safety Report 8159423-X (Version None)
Quarter: 2012Q1

REPORT INFORMATION
  Report Type: 
  Country: None (occurrence: None)
  Receive Date: 20120223
  Receipt Date: 20120216
  Transmission Date: 20120608
  Serious: Yes (Death, Other)
  Sender: FDA-Public Use
  Company Number: US-PFIZER INC-US-WYE-H02049608

PATIENT
  Age: 49 Year
  Sex: Male

DRUGS (10)
  1. GABAPENTIN [Suspect]
     Dosage: OVERDOSE AMOUNT UNSPECIFIED
     Route: 048
     Dates: start: 20060101, end: 20060101
  2. ACETYLSALICYLIC ACID SRT [Suspect]
     Dosage: OVERDOSE AMOUNT UNSPECIFIED
     Route: 048
     Dates: start: 20060101, end: 20060101
  3. IBUPROFEN [Suspect]
  4. LISINOPRIL [Suspect]
     Dosage: OVERDOSE AMOUNT UNSPECIFIED
     Route: 048
     Dates: start: 20060101, end: 20060101
  5. EFFEXOR [Suspect]
     Dosage: OVERDOSE AMOUNT UNSPECIFIED
     Route: 048
     Dates: start: 20060101, end: 20060101
  6. HYDROCHLOROTHIAZIDE [Suspect]
     Dosage: OVERDOSE AMOUNT UNSPECIFIED
     Route: 048
     Dates: start: 20060101, end: 20060101
  7. SITAGLIPTIN [Suspect]
  8. IMIPRAMINE [Suspect]
     Dosage: OVERDOSE AMOUNT UNSPECIFIED
     Route: 048
     Dates: start: 20060101, end: 20060101
  9. AMLODIPINE [Suspect]
     Dosage: OVERDOSE AMOUNT UNSPECIFIED
     Route: 048
     Dates: start: 20060101, end: 20060101
  10. DIAZEPAM [Suspect]
     Dosage: OVERDOSE AMOUNT UNSPECIFIED
     Route: 048
     Dates: start: 20060101, end: 20060101

REACTIONS (2)
  - INTENTIONAL OVERDOSE [None]
  - COMPLETED SUICIDE [None]
